FAERS Safety Report 4298558-9 (Version None)
Quarter: 2004Q1

REPORT INFORMATION
  Report Type: 
  Country: None (occurrence: None)
  Receive Date: 20040126
  Receipt Date: 20030923
  Transmission Date: 20041129
  Serious: No
  Sender: FDA-Public Use
  Company Number: USA030948005

PATIENT
  Age: 17 Year
  Sex: Female
  Weight: 68 kg

DRUGS (4)
  1. STRATTERA [Suspect]
     Dosage: 40 MG/DAY
     Dates: start: 20030920
  2. CONCERTA [Concomitant]
  3. MINOCYCLINE HCL [Concomitant]
  4. ORTHO TRI-CYCLEN [Concomitant]

REACTIONS (1)
  - FEELING ABNORMAL [None]
